FAERS Safety Report 6544154-X (Version None)
Quarter: 2010Q1

REPORT INFORMATION
  Report Type: 
  Country: None (occurrence: None)
  Receive Date: 20100120
  Receipt Date: 20090810
  Transmission Date: 20100710
  Serious: No
  Sender: FDA-Public Use
  Company Number: US-ALLERGAN-0911016US

PATIENT
  Sex: Female

DRUGS (5)
  1. PRED FORTE [Suspect]
     Indication: INFLAMMATION
     Dosage: UNK
     Route: 047
     Dates: start: 20090601
  2. PRED FORTE [Suspect]
     Indication: POSTOPERATIVE CARE
     Dosage: UNK
     Route: 047
     Dates: start: 20090501
  3. ZYMAR [Concomitant]
  4. ACULAR [Concomitant]
  5. METFORMIN HYDROCHLORIDE [Concomitant]

REACTIONS (1)
  - EYE PAIN [None]
